FAERS Safety Report 8964405 (Version 1)
Quarter: 2012Q4

REPORT INFORMATION
  Report Type: 
  Country: US (occurrence: US)
  Receive Date: 20121214
  Receipt Date: 20121214
  Transmission Date: 20130627
  Serious: No
  Sender: FDA-Public Use
  Company Number: US-GLAXOSMITHKLINE-A0982333A

PATIENT
  Age: 81 Year
  Sex: Male

DRUGS (9)
  1. AVODART [Suspect]
     Indication: BENIGN PROSTATIC HYPERPLASIA
     Dosage: .5MG Per day
     Route: 048
     Dates: start: 2010
  2. NIASPAN [Concomitant]
  3. CELEBREX [Concomitant]
  4. METOPROLOL [Concomitant]
  5. OMEPRAZOLE [Concomitant]
  6. ALLOPURINOL [Concomitant]
  7. SIMVASTATIN [Concomitant]
  8. ENALAPRIL [Concomitant]
  9. ASPIRIN [Concomitant]

REACTIONS (1)
  - Rash macular [Not Recovered/Not Resolved]
